FAERS Safety Report 14153419 (Version 2)
Quarter: 2018Q1

REPORT INFORMATION
  Report Type: Spontaneous
  Country: US (occurrence: US)
  Receive Date: 20171102
  Receipt Date: 20180201
  Transmission Date: 20180508
  Serious: No
  Sender: FDA-Public Use
  Company Number: US-SA-2017SA153306

PATIENT
  Age: 67 Year
  Sex: Male

DRUGS (13)
  1. PRALUENT [Suspect]
     Active Substance: ALIROCUMAB
     Indication: PROSTATE CANCER
     Route: 058
  2. PRALUENT [Suspect]
     Active Substance: ALIROCUMAB
     Indication: PROSTATE CANCER
     Route: 058
  3. CIPROFLOXACIN. [Concomitant]
     Active Substance: CIPROFLOXACIN
     Dosage: 500MG
     Route: 065
  4. PRALUENT [Suspect]
     Active Substance: ALIROCUMAB
     Indication: PROSTATE CANCER
     Route: 058
     Dates: start: 20170613
  5. HYDROCODONE [Concomitant]
     Active Substance: HYDROCODONE
     Dosage: 5-325MG
     Route: 065
  6. METOPROLOL. [Concomitant]
     Active Substance: METOPROLOL
     Dosage: 25MG
     Route: 065
  7. NIACIN. [Concomitant]
     Active Substance: NIACIN
     Dosage: ER CPC 500MG
     Route: 065
  8. ALIROCUMAB PREFILLED PEN [Suspect]
     Active Substance: ALIROCUMAB
     Indication: PROSTATE CANCER
     Dates: start: 20170613
  9. ALIROCUMAB PREFILLED PEN [Suspect]
     Active Substance: ALIROCUMAB
     Indication: PROSTATE CANCER
  10. NITROGLYCERINE [Concomitant]
     Active Substance: NITROGLYCERIN
     Dosage: SUB, 0.4MG
  11. LEVOTHYROXINE. [Concomitant]
     Active Substance: LEVOTHYROXINE
     Dosage: 50MCG
     Route: 065
  12. PRALUENT [Suspect]
     Active Substance: ALIROCUMAB
     Indication: PROSTATE CANCER
     Route: 058
     Dates: start: 20170613
  13. ISOSORBIDE. [Concomitant]
     Active Substance: ISOSORBIDE
     Dosage: 30MG
     Route: 065

REACTIONS (1)
  - Back pain [Not Recovered/Not Resolved]
